FAERS Safety Report 16882057 (Version 4)
Quarter: 2021Q1

REPORT INFORMATION
  Report Type: Report from Study
  Country: JP (occurrence: JP)
  Receive Date: 20191003
  Receipt Date: 20210104
  Transmission Date: 20210419
  Serious: Yes (Other)
  Sender: FDA-Public Use
  Company Number: JP-PFIZER INC-2019337254

PATIENT
  Age: 84 Year
  Sex: Female
  Weight: 59 kg

DRUGS (22)
  1. BESPONSA [Suspect]
     Active Substance: INOTUZUMAB OZOGAMICIN
     Dosage: 0.5 MG/M2, CYCLIC (2ND DOSE OF THE 3RD CYCLE)
     Dates: start: 20190927, end: 20190927
  2. BESPONSA [Suspect]
     Active Substance: INOTUZUMAB OZOGAMICIN
     Dosage: 0.5 MG/M2, CYCLIC (3RD DOSE OF THE 4TH CYCLE)
     Dates: start: 20191108, end: 20191108
  3. BESPONSA [Suspect]
     Active Substance: INOTUZUMAB OZOGAMICIN
     Dosage: 0.5 MG/M2, CYCLIC (2ND DOSE OF THE 4TH CYCLE)
     Dates: start: 20191101, end: 20191101
  4. BESPONSA [Suspect]
     Active Substance: INOTUZUMAB OZOGAMICIN
     Dosage: 0.5 MG/M2, CYCLIC (3RD DOSE OF THE 5TH CYCLE)
     Dates: start: 20191206, end: 20191206
  5. BESPONSA [Suspect]
     Active Substance: INOTUZUMAB OZOGAMICIN
     Dosage: 0.5 MG/M2, CYCLIC (2ND DOSE OF THE1ST CYCLE)
     Route: 041
     Dates: start: 20190731, end: 20190731
  6. BESPONSA [Suspect]
     Active Substance: INOTUZUMAB OZOGAMICIN
     Dosage: 0.5 MG/M2, CYCLIC (1ST DOSE OF THE 4TH CYCLE)
     Dates: start: 20191025, end: 20191025
  7. BESPONSA [Suspect]
     Active Substance: INOTUZUMAB OZOGAMICIN
     Indication: ACUTE LYMPHOCYTIC LEUKAEMIA RECURRENT
     Dosage: 0.8 MG/M2, CYCLIC (1ST DOSE OF THE1ST CYCLE)
     Route: 041
     Dates: start: 20190724, end: 20190724
  8. BESPONSA [Suspect]
     Active Substance: INOTUZUMAB OZOGAMICIN
     Dosage: 0.5 MG/M2, CYCLIC (1STD DOSE OF THE 6TH CYCLE)
     Dates: start: 20191220, end: 20191220
  9. FILGRASTIM [Concomitant]
     Active Substance: FILGRASTIM
     Dosage: 75 UG
     Route: 058
     Dates: start: 20190726, end: 20190730
  10. BESPONSA [Suspect]
     Active Substance: INOTUZUMAB OZOGAMICIN
     Dosage: 0.5 MG/M2, CYCLIC (2ND DOSE OF THE 2ND CYCLE)
     Route: 041
     Dates: start: 20190830, end: 20190830
  11. BESPONSA [Suspect]
     Active Substance: INOTUZUMAB OZOGAMICIN
     Dosage: 0.5 MG/M2, CYCLIC (3RD DOSE OF THE 3RD CYCLE)
     Dates: start: 20191003, end: 20191003
  12. BESPONSA [Suspect]
     Active Substance: INOTUZUMAB OZOGAMICIN
     Dosage: 0.5 MG/M2, CYCLIC (3RD DOSE OF THE 6TH CYCLE)
     Dates: start: 20200110, end: 20200110
  13. ONCOVIN [Concomitant]
     Active Substance: VINCRISTINE SULFATE
     Indication: ACUTE LYMPHOCYTIC LEUKAEMIA RECURRENT
     Dosage: 1.7 MG
     Route: 042
     Dates: start: 20190718, end: 20190718
  14. BESPONSA [Suspect]
     Active Substance: INOTUZUMAB OZOGAMICIN
     Dosage: 0.5 MG/M2, CYCLIC (3RD DOSE OF THE 2ND CYCLE)
     Dates: start: 20190906, end: 20190906
  15. BESPONSA [Suspect]
     Active Substance: INOTUZUMAB OZOGAMICIN
     Dosage: 0.5 MG/M2, CYCLIC (2ND DOSE OF THE 6TH CYCLE)
     Dates: start: 20191227, end: 20191227
  16. PREDNISOLONE. [Concomitant]
     Active Substance: PREDNISOLONE
     Indication: ACUTE LYMPHOCYTIC LEUKAEMIA RECURRENT
     Dosage: 50 MG
     Route: 048
     Dates: start: 20190718, end: 20190722
  17. BESPONSA [Suspect]
     Active Substance: INOTUZUMAB OZOGAMICIN
     Dosage: 0.5 MG/M2, CYCLIC (1ST DOSE OF THE 2ND CYCLE)
     Route: 041
     Dates: start: 20190823, end: 20190823
  18. BESPONSA [Suspect]
     Active Substance: INOTUZUMAB OZOGAMICIN
     Dosage: 0.5 MG/M2 CYCLIC (1ST DOSE OF THE 5TH CYCLE)
     Dates: start: 20191122, end: 20191122
  19. ENDOXAN [CYCLOPHOSPHAMIDE] [Suspect]
     Active Substance: CYCLOPHOSPHAMIDE
     Indication: ACUTE LYMPHOCYTIC LEUKAEMIA RECURRENT
     Dosage: 500 MG
     Route: 042
     Dates: start: 20190718, end: 20190718
  20. BESPONSA [Suspect]
     Active Substance: INOTUZUMAB OZOGAMICIN
     Dosage: 0.5 MG/M2, CYCLIC (3RD DOSE OF THE 1ST CYCLE)
     Route: 041
     Dates: start: 20190807, end: 20190807
  21. BESPONSA [Suspect]
     Active Substance: INOTUZUMAB OZOGAMICIN
     Dosage: 0.5 MG/M2, CYCLIC (1ST DOSE OF THE 3RD CYCLE)
     Dates: start: 20190920, end: 20190920
  22. BESPONSA [Suspect]
     Active Substance: INOTUZUMAB OZOGAMICIN
     Dosage: 0.5 MG/M2, CYCLIC (2ND DOSE OF THE 5TH CYCLE)
     Dates: start: 20191129, end: 20191129

REACTIONS (3)
  - Neutropenia [Recovered/Resolved]
  - Neutropenia [Recovered/Resolved]
  - Neutropenia [Recovered/Resolved]

NARRATIVE: CASE EVENT DATE: 20190729
